FAERS Safety Report 7119179-6 (Version None)
Quarter: 2010Q4

REPORT INFORMATION
  Report Type: 
  Country: None (occurrence: None)
  Receive Date: 20101123
  Receipt Date: 20101119
  Transmission Date: 20110411
  Serious: Yes (Hospitalization)
  Sender: FDA-Public Use
  Company Number: BR-ROCHE-743431

PATIENT
  Sex: Male

DRUGS (2)
  1. RIVOTRIL [Suspect]
     Indication: DEPRESSION
     Dosage: OVERDOSE
     Route: 065
  2. RIVOTRIL [Suspect]
     Dosage: DOSE: 2.5 MG/ML
     Route: 065

REACTIONS (2)
  - OVERDOSE [None]
  - SYNCOPE [None]
